FAERS Safety Report 4301876-9 (Version None)
Quarter: 2004Q1

REPORT INFORMATION
  Report Type: 
  Country: None (occurrence: None)
  Receive Date: 20040219
  Receipt Date: 20040212
  Transmission Date: 20041129
  Serious: Yes (Hospitalization)
  Sender: FDA-Public Use
  Company Number: TPA2004A00088

PATIENT
  Age: 51 Year
  Sex: Female
  Weight: 136.0791 kg

DRUGS (9)
  1. ACTOS [Suspect]
     Indication: DIABETES MELLITUS NON-INSULIN-DEPENDENT
     Dosage: 30 MG, 1 IN 1 D, PER ORAL
     Route: 048
     Dates: start: 20001013
  2. LIPITOR [Suspect]
     Indication: BLOOD CHOLESTEROL
     Dosage: 40 MG,  QHS, PER ORAL
     Route: 048
     Dates: start: 20021201, end: 20031201
  3. CLONIDINE (CLONIDINE (0.2 MILLIGRAM) [Concomitant]
  4. BENICAR (OLMESARTAN MEDOXOMIL) (4 0 MILLIGRAM) [Concomitant]
  5. HCTZ (HYDROCHLOROTHIAZIDE) (25 MILLIGRAM) [Concomitant]
  6. TRILEPTAL (OXCARBAZEPINE) (150 MILLIGRAM) [Concomitant]
  7. SYNTHROID (LEVOTHYROXINE SODIUM) (175 MILLIGRAM) [Concomitant]
  8. PROTONIX (PANTOPRAZOLE) (40 MILLIGRAM) [Concomitant]
  9. PRANDIN (REPAGLINIDE) (2 MILLIGRAM) [Concomitant]

REACTIONS (12)
  - CHEST PAIN [None]
  - DYSPNOEA EXERTIONAL [None]
  - ECCHYMOSIS [None]
  - ELECTROCARDIOGRAM T WAVE INVERSION [None]
  - FLUID RETENTION [None]
  - GALLBLADDER DISORDER [None]
  - HAEMATOMA [None]
  - MYALGIA [None]
  - MYOCARDIAL ISCHAEMIA [None]
  - PAIN [None]
  - SLEEP APNOEA SYNDROME [None]
  - WEIGHT INCREASED [None]
